FAERS Safety Report 11852327 (Version 4)
Quarter: 2016Q2

REPORT INFORMATION
  Report Type: Spontaneous
  Country: DE (occurrence: DE)
  Receive Date: 20151218
  Receipt Date: 20160603
  Transmission Date: 20160815
  Serious: Yes (Hospitalization)
  Sender: FDA-Public Use
  Company Number: DE-ELI_LILLY_AND_COMPANY-DE201512003041

PATIENT
  Age: 26 Year
  Sex: Female

DRUGS (9)
  1. ZYPREXA [Suspect]
     Active Substance: OLANZAPINE
     Indication: SCHIZOAFFECTIVE DISORDER
     Dosage: 7.5 MG, QD
     Route: 048
     Dates: start: 201503
  2. ZYPREXA [Suspect]
     Active Substance: OLANZAPINE
     Dosage: 5 MG, QD
     Route: 048
     Dates: start: 201601
  3. ZYPREXA [Suspect]
     Active Substance: OLANZAPINE
     Dosage: 15 MG, QD
     Route: 048
     Dates: start: 2015
  4. ZYPREXA [Suspect]
     Active Substance: OLANZAPINE
     Dosage: 5 MG, BEFORE BED
     Route: 048
  5. ZYPREXA [Suspect]
     Active Substance: OLANZAPINE
     Dosage: 15 MG, QD
     Route: 048
     Dates: start: 20150410
  6. ZYPREXA [Suspect]
     Active Substance: OLANZAPINE
     Dosage: 10 MG, QD
     Route: 048
     Dates: start: 201507
  7. TAVOR (LORAZEPAM) [Suspect]
     Active Substance: LORAZEPAM
     Indication: RESTLESSNESS
     Dosage: UNK, UNKNOWN
     Route: 065
  8. TAVOR (LORAZEPAM) [Suspect]
     Active Substance: LORAZEPAM
     Indication: ANXIETY
  9. ZYPREXA [Suspect]
     Active Substance: OLANZAPINE
     Dosage: 7.5 MG, QD
     Route: 048
     Dates: start: 201509

REACTIONS (16)
  - Restlessness [Unknown]
  - Psychotic disorder [Unknown]
  - Delusion [Unknown]
  - Anxiety [Unknown]
  - Extrapyramidal disorder [Unknown]
  - Thought broadcasting [Unknown]
  - Dermatitis atopic [Unknown]
  - Lymphopenia [Recovered/Resolved]
  - Agitation [Unknown]
  - Fatigue [Unknown]
  - Tension [Unknown]
  - Psychiatric symptom [Unknown]
  - Eosinophil count increased [Not Recovered/Not Resolved]
  - Irritability [Unknown]
  - Sense of oppression [Unknown]
  - Fear [Unknown]

NARRATIVE: CASE EVENT DATE: 20151102
